FAERS Safety Report 11094277 (Version 1)
Quarter: 2015Q2

REPORT INFORMATION
  Report Type: Spontaneous
  Country: US (occurrence: US)
  Receive Date: 20150506
  Receipt Date: 20150506
  Transmission Date: 20150821
  Serious: No
  Sender: FDA-Public Use
  Company Number: US-GLAXOSMITHKLINE-US2015029833

PATIENT
  Age: 29 Year
  Sex: Female

DRUGS (1)
  1. ALLI [Suspect]
     Active Substance: ORLISTAT
     Indication: WEIGHT LOSS DIET
     Dosage: UNK

REACTIONS (6)
  - Muscle spasms [Recovered/Resolved]
  - Steatorrhoea [Recovered/Resolved]
  - Abnormal faeces [Recovered/Resolved]
  - Rectal discharge [Recovered/Resolved]
  - Faecal incontinence [Recovered/Resolved]
  - Diarrhoea [Recovered/Resolved]
